FAERS Safety Report 19932417 (Version 1)
Quarter: 2021Q4

REPORT INFORMATION
  Report Type: Spontaneous
  Country: US (occurrence: US)
  Receive Date: 20211007
  Receipt Date: 20211007
  Transmission Date: 20220303
  Serious: No
  Sender: FDA-Public Use
  Company Number: None

PATIENT
  Age: 61 Year
  Sex: Female
  Weight: 122 kg

DRUGS (13)
  1. PRIVIGEN [Suspect]
     Active Substance: HUMAN IMMUNOGLOBULIN G
     Indication: Chronic inflammatory demyelinating polyradiculoneuropathy
     Dosage: ?          OTHER FREQUENCY:EVERY 2 WEEKS;
     Route: 041
     Dates: start: 20201230
  2. DIPHENHYDRAMINE [Concomitant]
     Active Substance: DIPHENHYDRAMINE
     Dates: start: 20201230
  3. famotidine 20 mg/2ml [Concomitant]
     Dates: start: 20201230
  4. acetaminophen 650 mg po [Concomitant]
     Dates: start: 20201230
  5. amlodipine 5 mg po [Concomitant]
     Dates: start: 20210407
  6. aspirin ec 81 mg po [Concomitant]
  7. Benazepril 20 mg po [Concomitant]
  8. claritin 10 mg po [Concomitant]
  9. NP thyroid 120 mg po [Concomitant]
  10. tamsulosin 0.4 mg po [Concomitant]
  11. transderm scop 1.5 mg [Concomitant]
  12. vitamin B-12 2500 units po [Concomitant]
  13. vitamin D 50 mcg po [Concomitant]

REACTIONS (2)
  - Urticaria [None]
  - Infusion related reaction [None]

NARRATIVE: CASE EVENT DATE: 20210924
